FAERS Safety Report 13083396 (Version 1)
Quarter: 2017Q1

REPORT INFORMATION
  Report Type: Spontaneous
  Country: US (occurrence: US)
  Receive Date: 20170104
  Receipt Date: 20170104
  Transmission Date: 20170428
  Serious: Yes (Other)
  Sender: FDA-Public Use
  Company Number: US-STRIDES ARCOLAB LIMITED-2016SP020805

PATIENT

DRUGS (1)
  1. VANCOMYCIN [Suspect]
     Active Substance: VANCOMYCIN
     Indication: PROPHYLAXIS
     Dosage: UNK
     Route: 031

REACTIONS (4)
  - Haemorrhagic vasculitis [Unknown]
  - Blindness [Recovered/Resolved]
  - Retinal vasculitis [Unknown]
  - Toxicity to various agents [Unknown]
